FAERS Safety Report 5091518-X (Version None)
Quarter: 2006Q3

REPORT INFORMATION
  Report Type: 
  Country: None (occurrence: None)
  Receive Date: 20060829
  Receipt Date: 20051223
  Transmission Date: 20061208
  Serious: Yes (Death, Hospitalization, Other)
  Sender: FDA-Public Use
  Company Number: US-BAYER-200513091BWH

PATIENT
  Age: 74 Year
  Sex: Female
  Weight: 71 kg

DRUGS (12)
  1. SORAFENIB [Suspect]
     Indication: NON-SMALL CELL LUNG CANCER METASTATIC
     Dosage: TOTAL DAILY DOSE: 800 MG  UNIT DOSE: 200 MG
     Route: 048
     Dates: start: 20051118, end: 20051215
  2. SORAFENIB [Suspect]
     Dosage: TOTAL DAILY DOSE: 400 MG  UNIT DOSE: 200 MG
     Route: 048
     Dates: start: 20051221, end: 20060316
  3. COMBIVENT [Concomitant]
  4. ASPIRIN [Concomitant]
  5. NITROGLYCERIN [Concomitant]
  6. CARBOPLATIN [Concomitant]
     Dates: start: 20030501, end: 20030701
  7. TAXOL [Concomitant]
     Dates: start: 20030501, end: 20030701
  8. PLACEBO OR NEOVASTAT [Concomitant]
     Dates: start: 20030501, end: 20030701
  9. SHARK CARTILAGE [Concomitant]
     Dates: start: 20030501, end: 20030701
  10. ALIMTA [Concomitant]
     Dates: start: 20041014
  11. GEMZAR [Concomitant]
     Dates: start: 20041014
  12. TAXOTERE [Concomitant]
     Dates: start: 20050505, end: 20050823

REACTIONS (8)
  - ATRIAL FIBRILLATION [None]
  - DERMAL CYST [None]
  - DYSPNOEA EXERTIONAL [None]
  - HEART RATE INCREASED [None]
  - HEART VALVE INSUFFICIENCY [None]
  - LUNG NEOPLASM MALIGNANT [None]
  - MALIGNANT NEOPLASM PROGRESSION [None]
  - PULMONARY HYPERTENSION [None]
